FAERS Safety Report 6347680-1 (Version None)
Quarter: 2009Q3

REPORT INFORMATION
  Report Type: 
  Country: None (occurrence: None)
  Receive Date: 20090910
  Receipt Date: 20090820
  Transmission Date: 20100115
  Serious: Yes (Other)
  Sender: FDA-Public Use
  Company Number: US-ASTRAZENECA-2008UW27538

PATIENT
  Age: 29 Year
  Sex: Male
  Weight: 99.8 kg

DRUGS (6)
  1. SEROQUEL [Suspect]
     Indication: DEPRESSION
     Dosage: 25- 100 MG
     Route: 048
     Dates: start: 20031101, end: 20051105
  2. SEROQUEL [Suspect]
     Indication: SLEEP DISORDER
     Dosage: 25- 100 MG
     Route: 048
     Dates: start: 20031101, end: 20051105
  3. SEROQUEL [Suspect]
     Indication: INSOMNIA
     Dosage: 25- 100 MG
     Route: 048
     Dates: start: 20031101, end: 20051105
  4. RISPERDAL [Concomitant]
  5. PROZAC [Concomitant]
  6. PAXIL [Concomitant]

REACTIONS (5)
  - CARDIAC DISORDER [None]
  - DIABETES MELLITUS [None]
  - MIGRAINE [None]
  - TRANSIENT ISCHAEMIC ATTACK [None]
  - TYPE 1 DIABETES MELLITUS [None]
